FAERS Safety Report 4844604-0 (Version None)
Quarter: 2005Q4

REPORT INFORMATION
  Report Type: 
  Country: None (occurrence: None)
  Receive Date: 20051129
  Receipt Date: 20051111
  Transmission Date: 20060501
  Serious: Yes (Hospitalization)
  Sender: FDA-Public Use
  Company Number: CZ200511000769

PATIENT
  Age: 67 Year
  Sex: Male

DRUGS (1)
  1. XIGRIS [Suspect]
     Indication: SEPSIS
     Dosage: OTHER, INTRAVENOUS
     Route: 042
     Dates: start: 20051024, end: 20051028

REACTIONS (1)
  - MYOPATHY [None]
